FAERS Safety Report 9393955 (Version 1)
Quarter: 2013Q3

REPORT INFORMATION
  Report Type: Spontaneous
  Country: US (occurrence: US)
  Receive Date: 20130710
  Receipt Date: 20130710
  Transmission Date: 20140515
  Serious: No
  Sender: FDA-Public Use
  Company Number: US-009507513-1307USA001151

PATIENT
  Age: 51 Year
  Sex: Female

DRUGS (3)
  1. ASMANEX TWISTHALER [Suspect]
     Dosage: 1 PUFF ONCE DAILY
     Route: 055
  2. AVIANE [Concomitant]
  3. ALBUTEROL [Concomitant]

REACTIONS (3)
  - Chest discomfort [Not Recovered/Not Resolved]
  - Cough [Not Recovered/Not Resolved]
  - Product quality issue [Unknown]
